FAERS Safety Report 10219874 (Version 1)
Quarter: 2014Q2

REPORT INFORMATION
  Report Type: Spontaneous
  Country: US (occurrence: US)
  Receive Date: 20140605
  Receipt Date: 20140605
  Transmission Date: 20141212
  Serious: Yes (Hospitalization)
  Sender: FDA-Public Use
  Company Number: US-GLAXOSMITHKLINE-A1075098A

PATIENT
  Age: 62 Year
  Sex: Female

DRUGS (10)
  1. REQUIP XL [Suspect]
     Indication: RESTLESS LEGS SYNDROME
     Dosage: 16MG PER DAY
     Route: 048
  2. FIORINAL [Concomitant]
  3. PROTONIX [Concomitant]
  4. CARAFATE [Concomitant]
  5. WARFARIN [Concomitant]
  6. CLONIDINE [Concomitant]
  7. LISINOPRIL [Concomitant]
  8. CALCITROL [Concomitant]
  9. VITAMIN D [Concomitant]
  10. LASIX [Concomitant]

REACTIONS (8)
  - Convulsion [Not Recovered/Not Resolved]
  - Speech disorder [Unknown]
  - Confusional state [Unknown]
  - Incontinence [Unknown]
  - Pain in extremity [Unknown]
  - Vasculitis [Unknown]
  - Peripheral swelling [Unknown]
  - Muscle spasms [Unknown]
